FAERS Safety Report 12482597 (Version 2)
Quarter: 2016Q3

REPORT INFORMATION
  Report Type: Spontaneous
  Country: GB (occurrence: GB)
  Receive Date: 20160620
  Receipt Date: 20160707
  Transmission Date: 20161109
  Serious: Yes (Other)
  Sender: FDA-Public Use
  Company Number: GB-PFIZER INC-2016301257

PATIENT
  Age: 59 Year
  Sex: Female
  Weight: 68 kg

DRUGS (12)
  1. METRONIDAZOLE. [Concomitant]
     Active Substance: METRONIDAZOLE
     Route: 042
  2. RABEPRAZOLE SODIUM. [Concomitant]
     Active Substance: RABEPRAZOLE SODIUM
     Dosage: 10 MG, UNK
  3. CLINDAMYCIN HCL [Suspect]
     Active Substance: CLINDAMYCIN HYDROCHLORIDE
     Indication: ANTIBIOTIC THERAPY
     Dosage: 150 MG, 4X/DAY
     Route: 048
     Dates: start: 20160515, end: 20160522
  4. BISOPROLOL [Concomitant]
     Active Substance: BISOPROLOL
     Dosage: 1.25 MG, UNK
  5. CETIRIZINE HYDROCHLORIDE. [Concomitant]
     Active Substance: CETIRIZINE HYDROCHLORIDE
  6. CLINDAMYCIN HCL [Suspect]
     Active Substance: CLINDAMYCIN HYDROCHLORIDE
     Indication: CELLULITIS
     Route: 042
  7. GAVISCON DOUBLE ACTION [Concomitant]
     Dosage: TAKEN OCCASIONALLY
  8. BECONASE AQ [Concomitant]
     Active Substance: BECLOMETHASONE DIPROPIONATE MONOHYDRATE
  9. CIPROFLOXACIN HCL [Suspect]
     Active Substance: CIPROFLOXACIN HYDROCHLORIDE
     Indication: ANTIBIOTIC THERAPY
     Dosage: 250 MG, 2X/DAY
     Route: 048
     Dates: start: 20160515, end: 20160522
  10. BUTTERCUP SYRUP (UK) [Concomitant]
  11. CIPROFLOXACIN HCL [Suspect]
     Active Substance: CIPROFLOXACIN HYDROCHLORIDE
     Indication: CELLULITIS
     Route: 042
  12. GENTAMICIN. [Concomitant]
     Active Substance: GENTAMICIN

REACTIONS (10)
  - Tongue coated [Unknown]
  - Pruritus [Unknown]
  - Feeling cold [Unknown]
  - Cough [Unknown]
  - Rash macular [Recovering/Resolving]
  - Chills [Unknown]
  - Dry mouth [Unknown]
  - Erythema [Unknown]
  - Body temperature increased [Unknown]
  - Skin warm [Unknown]

NARRATIVE: CASE EVENT DATE: 20160521
